FAERS Safety Report 8617541-3 (Version None)
Quarter: 2012Q3

REPORT INFORMATION
  Report Type: 
  Country: None (occurrence: None)
  Receive Date: 20120824
  Receipt Date: 20111111
  Transmission Date: 20120928
  Serious: No
  Sender: FDA-Public Use
  Company Number: US-ASTRAZENECA-2011SE68694

PATIENT
  Age: 9 Year
  Sex: Male
  Weight: 38.6 kg

DRUGS (3)
  1. SYMBICORT [Suspect]
     Indication: ASTHMA
     Dosage: 2 PUFFS EVERY DAY
     Route: 055
     Dates: start: 20090101
  2. PULMICORT FLEXHALER [Suspect]
     Route: 055
  3. BENADRYL [Concomitant]
     Indication: MULTIPLE ALLERGIES

REACTIONS (2)
  - OFF LABEL USE [None]
  - DRUG INEFFECTIVE [None]
